FAERS Safety Report 12397334 (Version 1)
Quarter: 2016Q2

REPORT INFORMATION
  Report Type: Spontaneous
  Country: GB (occurrence: None)
  Receive Date: 20160523
  Receipt Date: 20160523
  Transmission Date: 20160815
  Serious: No
  Sender: FDA-Public Use
  Company Number: None

PATIENT
  Age: 44 Year
  Sex: Male
  Weight: 70 kg

DRUGS (10)
  1. DULOXETINE. [Suspect]
     Active Substance: DULOXETINE
     Indication: INJURY
     Dosage: IN THE MORNING  TAKEN BY MOUTH
     Route: 048
     Dates: start: 20120930, end: 20160131
  2. DULOXETINE. [Suspect]
     Active Substance: DULOXETINE
     Indication: MENTAL FATIGUE
     Dosage: IN THE MORNING  TAKEN BY MOUTH
     Route: 048
     Dates: start: 20120930, end: 20160131
  3. L GLUTAMINE [Concomitant]
     Active Substance: GLUTAMINE
  4. NEUROZAN [Concomitant]
  5. PRIMROSE OIL [Concomitant]
  6. DULOXETINE. [Suspect]
     Active Substance: DULOXETINE
     Indication: ASTHENIA
     Dosage: IN THE MORNING  TAKEN BY MOUTH
     Route: 048
     Dates: start: 20120930, end: 20160131
  7. DULOXETINE. [Suspect]
     Active Substance: DULOXETINE
     Indication: POST VIRAL FATIGUE SYNDROME
     Dosage: IN THE MORNING  TAKEN BY MOUTH
     Route: 048
     Dates: start: 20120930, end: 20160131
  8. GINKGO BILOBA [Concomitant]
     Active Substance: GINKGO
  9. PROBIOTIC [Concomitant]
     Active Substance: PROBIOTICS NOS
  10. GLUCASOMINE/CHONDROITIN [Concomitant]

REACTIONS (4)
  - Muscle twitching [None]
  - Sexual dysfunction [None]
  - Hypersomnia [None]
  - Anorgasmia [None]

NARRATIVE: CASE EVENT DATE: 20120930
